FAERS Safety Report 7723546-7 (Version None)
Quarter: 2011Q3

REPORT INFORMATION
  Report Type: 
  Country: None (occurrence: None)
  Receive Date: 20110901
  Receipt Date: 20110818
  Transmission Date: 20111222
  Serious: Yes (Other)
  Sender: FDA-Public Use
  Company Number: PHHY2011BR74340

PATIENT
  Sex: Female

DRUGS (6)
  1. DIOVAN [Suspect]
     Indication: HYPERTENSION
     Dosage: 1 DF, 160 MG, DAILY
  2. AZULFIDINE [Concomitant]
     Indication: COLITIS ULCERATIVE
     Dosage: 1 MG, BID
     Route: 048
  3. FOLIC ACID [Concomitant]
     Route: 048
  4. SINGULAIR [Concomitant]
     Indication: HYPERSENSITIVITY
     Route: 048
  5. OMEPRAZOLE [Concomitant]
     Indication: ABDOMINAL DISCOMFORT
     Dosage: 20 MG, BID
     Route: 048
  6. SIMVASTATIN [Concomitant]
     Indication: BLOOD CHOLESTEROL INCREASED
     Dosage: 20 MG, QD
     Route: 048

REACTIONS (6)
  - GASTROINTESTINAL TRACT IRRITATION [None]
  - DYSPNOEA [None]
  - TONSILLITIS [None]
  - EAR PAIN [None]
  - ABDOMINAL PAIN [None]
  - SWELLING FACE [None]
